FAERS Safety Report 6688211-6 (Version None)
Quarter: 2010Q2

REPORT INFORMATION
  Report Type: 
  Country: None (occurrence: None)
  Receive Date: 20100420
  Receipt Date: 20100409
  Transmission Date: 20101027
  Serious: Yes (Other)
  Sender: FDA-Public Use
  Company Number: CH-TEVA-217808ISR

PATIENT
  Sex: Female
  Weight: 2.4 kg

DRUGS (11)
  1. FLUOROURACIL [Suspect]
     Indication: BREAST CANCER FEMALE
     Dates: start: 20090106, end: 20090217
  2. FLUOROURACIL [Concomitant]
  3. EPIRUBICIN [Suspect]
     Indication: BREAST CANCER FEMALE
     Dates: start: 20090106, end: 20090217
  4. CYCLOPHOSPHAMIDE [Suspect]
     Indication: BREAST CANCER FEMALE
     Dates: start: 20090106, end: 20090217
  5. ONDANSETRON [Suspect]
     Indication: NAUSEA
     Dates: start: 20090106, end: 20090101
  6. ONDANSETRON [Suspect]
     Indication: VOMITING
  7. PANTOPRAZOLE [Suspect]
     Indication: PROPHYLAXIS
     Dates: start: 20090101, end: 20090101
  8. METHYLPREDNISOLONE SODIUM SUCCINATE [Concomitant]
     Indication: NAUSEA
  9. METHYLPREDNISOLONE SODIUM SUCCINATE [Concomitant]
     Indication: VOMITING
  10. FERROUS SULFATE (FERRO SANOL) [Concomitant]
     Dates: start: 20090101, end: 20090101
  11. ELEVIT [Concomitant]
     Indication: SUPPLEMENTATION THERAPY
     Dates: start: 20080101, end: 20090101

REACTIONS (6)
  - CAESAREAN SECTION [None]
  - DRUG EXPOSURE DURING PREGNANCY [None]
  - FOETAL GROWTH RETARDATION [None]
  - HYPOGLYCAEMIA NEONATAL [None]
  - HYPOTENSION [None]
  - NEONATAL RESPIRATORY DISTRESS SYNDROME [None]
